FAERS Safety Report 23669953 (Version 2)
Quarter: 2024Q1

REPORT INFORMATION
  Report Type: Spontaneous
  Country: US (occurrence: US)
  Receive Date: 20240325
  Receipt Date: 20240326
  Transmission Date: 20240409
  Serious: Yes (Other)
  Sender: FDA-Public Use
  Company Number: US-PFIZER INC-PV202400039311

PATIENT
  Age: 78 Year
  Sex: Female
  Weight: 51.701 kg

DRUGS (3)
  1. BRAFTOVI [Suspect]
     Active Substance: ENCORAFENIB
     Indication: Adenocarcinoma pancreas
     Dosage: 300 MG, DAILY
     Route: 048
     Dates: start: 20240220
  2. NORVASC [Concomitant]
     Active Substance: AMLODIPINE BESYLATE
     Dosage: TAKE 2.5 MG BY MOUTH NIGHTLY, AT BEDTIME, TAKES PRN
     Route: 048
     Dates: start: 20231128
  3. MEDROL [Concomitant]
     Active Substance: METHYLPREDNISOLONE
     Dosage: TAKE 1 PILL 12 HOURS AND 1 PILL 2 HOURS BEFORE SCAN
     Route: 048
     Dates: start: 20240104

REACTIONS (4)
  - Neutropenia [Unknown]
  - Red blood cell count decreased [Unknown]
  - Red cell distribution width increased [Unknown]
  - Off label use [Unknown]

NARRATIVE: CASE EVENT DATE: 20240220
